FAERS Safety Report 9650151 (Version 2)
Quarter: 2013Q4

REPORT INFORMATION
  Report Type: Spontaneous
  Country: US (occurrence: US)
  Receive Date: 20131028
  Receipt Date: 20131028
  Transmission Date: 20140711
  Serious: No
  Sender: FDA-Public Use
  Company Number: US-PURDUE-USA-2012-0093468

PATIENT
  Age: 64 Year
  Sex: Female
  Weight: 63.49 kg

DRUGS (13)
  1. OXYCONTIN (NDA 22-272) [Suspect]
     Indication: FIBROMYALGIA
     Dosage: 40 MG, TID
     Route: 048
     Dates: start: 200301
  2. OXYCONTIN (NDA 22-272) [Suspect]
     Indication: ARTHRITIS
     Dosage: 10 MG, BID
     Route: 048
  3. OXYCONTIN (NDA 22-272) [Suspect]
     Indication: MYOTONIC DYSTROPHY
  4. OXYCONTIN (NDA 22-272) [Suspect]
     Indication: BURSITIS
  5. TEMAZEPAM [Concomitant]
     Indication: PRODUCT USED FOR UNKNOWN INDICATION
     Dosage: 5 MG, DAILY
  6. ALLOPURINOL [Concomitant]
     Indication: PRODUCT USED FOR UNKNOWN INDICATION
     Dosage: 100 MG, DAILY
  7. ALPHA LIPOIC ACID [Concomitant]
     Indication: PRODUCT USED FOR UNKNOWN INDICATION
     Dosage: 600 MG, DAILY
  8. ARMOUR THYROID [Concomitant]
     Indication: HYPOTHYROIDISM
     Dosage: 120 MG, DAILY
  9. VALTREX [Concomitant]
     Indication: PRODUCT USED FOR UNKNOWN INDICATION
     Dosage: 500 MG, BID
  10. JANUMET [Concomitant]
     Indication: PRODUCT USED FOR UNKNOWN INDICATION
  11. CO Q 10 [Concomitant]
     Indication: PRODUCT USED FOR UNKNOWN INDICATION
  12. EXLAX                              /00221401/ [Concomitant]
     Indication: PRODUCT USED FOR UNKNOWN INDICATION
  13. MULTIVITAMIN                       /00831701/ [Concomitant]
     Indication: PRODUCT USED FOR UNKNOWN INDICATION

REACTIONS (4)
  - Fall [Unknown]
  - Arthralgia [Not Recovered/Not Resolved]
  - Breakthrough pain [Unknown]
  - Drug dose omission [Unknown]
